FAERS Safety Report 21279809 (Version 1)
Quarter: 2022Q3

REPORT INFORMATION
  Report Type: Spontaneous
  Country: US (occurrence: US)
  Receive Date: 20220901
  Receipt Date: 20220901
  Transmission Date: 20221027
  Serious: Yes (Other)
  Sender: FDA-Public Use
  Company Number: US-AVET LIFESCIENCES LTD-2022-AVET-000148

PATIENT
  Age: 14 Year
  Sex: Female
  Weight: 52 kg

DRUGS (8)
  1. TACROLIMUS [Interacting]
     Active Substance: TACROLIMUS
     Indication: Immunosuppression
     Dosage: 2.5 MILLIGRAM, PO TWICE DAILY (GOAL RANGE OF 3?5 NG/ML)
     Route: 048
  2. TACROLIMUS [Interacting]
     Active Substance: TACROLIMUS
     Dosage: 1 MILLIGRAM, (123 H OR 5 DAYS AFTER HOLDING THE TACROLIMUS)
  3. TACROLIMUS [Interacting]
     Active Substance: TACROLIMUS
     Dosage: 2.5 MILLIGRAM, PO TWICE DAILY STARTING THAT EVENING
  4. TACROLIMUS [Interacting]
     Active Substance: TACROLIMUS
     Dosage: 2.5 MG/2 MG FOR A TOTAL DAILY DOSE OF 4.5 MG PER DAY
  5. PAXLOVID [Interacting]
     Active Substance: NIRMATRELVIR\RITONAVIR
     Indication: COVID-19
     Dosage: 300 MG/100 MG BY MOUTH TWICE DAILY
  6. PAXLOVID [Interacting]
     Active Substance: NIRMATRELVIR\RITONAVIR
     Indication: Epstein-Barr viraemia
  7. MYCOPHENOLATE MOFETIL [Suspect]
     Active Substance: MYCOPHENOLATE MOFETIL
     Indication: Immunosuppression
     Dosage: UNK
  8. PREDNISONE [Suspect]
     Active Substance: PREDNISONE
     Indication: Immunosuppression
     Dosage: 5 MILLIGRAM, QD, PO DAILY
     Route: 048

REACTIONS (4)
  - Drug interaction [Unknown]
  - Anticoagulation drug level above therapeutic [Recovered/Resolved]
  - Epstein-Barr viraemia [Unknown]
  - Blood creatinine increased [Recovered/Resolved]
